FAERS Safety Report 21160233 (Version 6)
Quarter: 2022Q4

REPORT INFORMATION
  Report Type: Spontaneous
  Country: JP (occurrence: JP)
  Receive Date: 20220802
  Receipt Date: 20221114
  Transmission Date: 20230112
  Serious: Yes (Hospitalization, Other)
  Sender: FDA-Public Use
  Company Number: JP-CHUGAI-2022028293

PATIENT
  Age: 80 Year
  Sex: Male

DRUGS (12)
  1. VABYSMO [Suspect]
     Active Substance: FARICIMAB-SVOA
     Indication: Neovascular age-related macular degeneration
     Dosage: 6 MILLIGRAM, ONCE/4WEEKS?FARICIMAB WAS INITIATED IN THE RIGHT EYE
     Route: 031
     Dates: start: 20220714, end: 20220714
  2. VABYSMO [Suspect]
     Active Substance: FARICIMAB-SVOA
     Dosage: FARICIMAB WAS ADMINISTERED TO THE LEFT EYE
     Route: 031
     Dates: start: 20220721, end: 20220721
  3. PRANOPROFEN [Concomitant]
     Active Substance: PRANOPROFEN
     Dosage: 5 MILLILITER, QID
     Route: 047
  4. TOSUFLOXACIN TOSYLATE [Concomitant]
     Active Substance: TOSUFLOXACIN TOSYLATE
     Dosage: 5 MILLILITER, TID
     Route: 047
  5. BROMFENAC SODIUM [Concomitant]
     Active Substance: BROMFENAC SODIUM
     Dosage: 5 MILLILITER, BID
     Route: 047
  6. VALSARTAN [Concomitant]
     Active Substance: VALSARTAN
     Dosage: UNK
     Route: 065
  7. AMLODIPINE BESYLATE [Concomitant]
     Active Substance: AMLODIPINE BESYLATE
     Dosage: UNK
     Route: 065
  8. ROSUVASTATIN [Concomitant]
     Active Substance: ROSUVASTATIN
     Dosage: UNK
     Route: 065
  9. BISOPROLOL [Concomitant]
     Active Substance: BISOPROLOL
     Dosage: UNK
     Route: 065
  10. CLOPIDOGREL BISULFATE [Concomitant]
     Active Substance: CLOPIDOGREL BISULFATE
  11. METFORMIN HYDROCHLORIDE [Concomitant]
     Active Substance: METFORMIN HYDROCHLORIDE
  12. INSULIN NOS [Concomitant]
     Active Substance: INSULIN NOS

REACTIONS (5)
  - Panophthalmitis [Recovered/Resolved]
  - Keratitis [Recovering/Resolving]
  - Retinal vascular occlusion [Not Recovered/Not Resolved]
  - Hypopyon [Recovering/Resolving]
  - Endophthalmitis [Recovering/Resolving]

NARRATIVE: CASE EVENT DATE: 20220718
